FAERS Safety Report 18355313 (Version 5)
Quarter: 2025Q3

REPORT INFORMATION
  Report Type: Spontaneous
  Country: US (occurrence: US)
  Receive Date: 20201007
  Receipt Date: 20250912
  Transmission Date: 20251020
  Serious: No
  Sender: VERTEX
  Company Number: US-VERTEX PHARMACEUTICALS-2020-019483

PATIENT
  Sex: Female

DRUGS (11)
  1. TRIKAFTA [Suspect]
     Active Substance: ELEXACAFTOR\IVACAFTOR\TEZACAFTOR
     Indication: Cystic fibrosis
     Dosage: 2 ORANGE TABS AM, 1 BLUE TAB PM
     Route: 048
     Dates: start: 201911
  2. TRIKAFTA [Suspect]
     Active Substance: ELEXACAFTOR\IVACAFTOR\TEZACAFTOR
     Route: 048
     Dates: start: 20201204
  3. VITAMIN E [Concomitant]
     Active Substance: .ALPHA.-TOCOPHEROL
  4. VITAMIN B [Concomitant]
     Active Substance: VITAMIN B
  5. AZITHROMYCIN [Concomitant]
     Active Substance: AZITHROMYCIN
  6. CLONIDINE [Concomitant]
     Active Substance: CLONIDINE
  7. FEXOFENADINE [Concomitant]
     Active Substance: FEXOFENADINE HYDROCHLORIDE
  8. SUDAFED [Concomitant]
     Active Substance: PSEUDOEPHEDRINE HYDROCHLORIDE
  9. MYORISAN [Concomitant]
     Active Substance: ISOTRETINOIN
  10. ALBUTEROL [Concomitant]
     Active Substance: ALBUTEROL
  11. DULERA [Concomitant]
     Active Substance: FORMOTEROL FUMARATE DIHYDRATE\MOMETASONE FUROATE

REACTIONS (5)
  - Rash papular [Not Recovered/Not Resolved]
  - Rash pruritic [Not Recovered/Not Resolved]
  - Exfoliative rash [Not Recovered/Not Resolved]
  - Guttate psoriasis [Not Recovered/Not Resolved]
  - Alopecia [Not Recovered/Not Resolved]

NARRATIVE: CASE EVENT DATE: 20190101
